FAERS Safety Report 20762308 (Version 1)
Quarter: 2022Q2

REPORT INFORMATION
  Report Type: Spontaneous
  Country: CN (occurrence: CN)
  Receive Date: 20220428
  Receipt Date: 20220428
  Transmission Date: 20220721
  Serious: Yes (Other)
  Sender: FDA-Public Use
  Company Number: CN-MLMSERVICE-20220414-3499110-1

PATIENT
  Age: 58 Year
  Sex: Male

DRUGS (3)
  1. CISPLATIN [Suspect]
     Active Substance: CISPLATIN
     Indication: Peritoneal mesothelioma malignant
     Dosage: 50 MG D1-D2, 30 MG D3 EVERY 21 DAYS
  2. BEVACIZUMAB [Suspect]
     Active Substance: BEVACIZUMAB
     Indication: Peritoneal mesothelioma malignant
     Dosage: 400 MG D0, EVERY 21 DAYS
  3. PEMETREXED [Suspect]
     Active Substance: PEMETREXED
     Indication: Peritoneal mesothelioma malignant
     Dosage: 700 MG D1, EVERY 21 DAYS

REACTIONS (3)
  - Dysphagia [Recovering/Resolving]
  - Myelosuppression [Recovering/Resolving]
  - Secondary immunodeficiency [Recovering/Resolving]
